FAERS Safety Report 10909750 (Version 1)
Quarter: 2015Q1

REPORT INFORMATION
  Report Type: Spontaneous
  Country: US (occurrence: US)
  Receive Date: 20150312
  Receipt Date: 20150312
  Transmission Date: 20150721
  Serious: No
  Sender: FDA-Public Use
  Company Number: US-SA-2014SA049131

PATIENT
  Age: 85 Year
  Sex: Female

DRUGS (3)
  1. NASACORT ALLERGY 24HR [Suspect]
     Active Substance: TRIAMCINOLONE ACETONIDE
     Indication: RHINORRHOEA
     Dosage: SHE WAS USING 1 SPRAY OF NASACORT IN EACH NOSTRIL PERIODICALLY THROUGHOUT THE DAY. DOSE:1 UNIT(S)
     Route: 045
     Dates: start: 20140310, end: 20140325
  2. NASACORT ALLERGY 24HR [Suspect]
     Active Substance: TRIAMCINOLONE ACETONIDE
     Indication: RHINORRHOEA
     Dosage: SHE WAS USING 1 SPRAY OF NASACORT IN EACH NOSTRIL PERIODICALLY THROUGHOUT THE DAY. DOSE:1 UNIT(S)
     Route: 045
     Dates: start: 20140310, end: 20140325
  3. DIPHENHYDRAMINE HYDROCHLORIDE. [Concomitant]
     Active Substance: DIPHENHYDRAMINE HYDROCHLORIDE
     Indication: RHINORRHOEA
     Dosage: 2 TO 3 TIMES DAILY
     Route: 065

REACTIONS (1)
  - Drug ineffective [Unknown]
